FAERS Safety Report 6012978-3 (Version None)
Quarter: 2008Q4

REPORT INFORMATION
  Report Type: 
  Country: None (occurrence: None)
  Receive Date: 20081219
  Receipt Date: 20081208
  Transmission Date: 20090506
  Serious: Yes (Other)
  Sender: FDA-Public Use
  Company Number: US-BAXTER-2008BH006616

PATIENT
  Age: 17 Year
  Sex: Male
  Weight: 81 kg

DRUGS (10)
  1. ADVATE [Suspect]
     Indication: HAEMOPHILIA
     Route: 042
     Dates: start: 20050101, end: 20080604
  2. ADVATE [Suspect]
     Route: 042
     Dates: start: 20050101, end: 20080604
  3. ADVATE [Suspect]
     Route: 042
     Dates: start: 20050101, end: 20080604
  4. ADVATE [Suspect]
     Route: 042
     Dates: start: 20050101, end: 20080604
  5. ADVATE [Suspect]
     Route: 042
     Dates: start: 20050101, end: 20080604
  6. ADVATE [Suspect]
     Route: 042
     Dates: start: 20050101, end: 20080604
  7. ADVATE [Suspect]
     Route: 042
     Dates: start: 20050101, end: 20080604
  8. ADVATE [Suspect]
     Route: 042
     Dates: start: 20080605
  9. RECOMBINATE [Concomitant]
     Indication: HAEMOPHILIA
     Route: 041
     Dates: start: 19910101, end: 20050101
  10. ZYRTEC [Concomitant]
     Indication: RHINITIS SEASONAL
     Route: 048

REACTIONS (2)
  - FACTOR VIII INHIBITION [None]
  - HAEMORRHAGE [None]
